FAERS Safety Report 21422128 (Version 3)
Quarter: 2022Q4

REPORT INFORMATION
  Report Type: Spontaneous
  Country: AU (occurrence: AU)
  Receive Date: 20221007
  Receipt Date: 20221208
  Transmission Date: 20230113
  Serious: Yes (Hospitalization, Other)
  Sender: FDA-Public Use
  Company Number: AU-APELLIS PHARMACEUTICALS-APL-2022-001611

PATIENT

DRUGS (10)
  1. PEGCETACOPLAN [Suspect]
     Active Substance: PEGCETACOPLAN
     Indication: Paroxysmal nocturnal haemoglobinuria
     Dosage: MONDAY AND THURSDAY
     Dates: start: 202203
  2. PEGCETACOPLAN [Suspect]
     Active Substance: PEGCETACOPLAN
     Dosage: THREE TIMES A WEEK
  3. JADENU [Concomitant]
     Active Substance: DEFERASIROX
     Indication: Product used for unknown indication
  4. PAXLOVID [Concomitant]
     Active Substance: NIRMATRELVIR\RITONAVIR
     Indication: Product used for unknown indication
     Dates: start: 20220906
  5. CEFTRIAXONE [Concomitant]
     Active Substance: CEFTRIAXONE
     Indication: Product used for unknown indication
     Dates: start: 20220906, end: 20220909
  6. AZITHROMYCIN [Concomitant]
     Active Substance: AZITHROMYCIN
     Indication: Product used for unknown indication
     Dates: start: 20220906, end: 20220909
  7. AMOXICILLIN [Concomitant]
     Active Substance: AMOXICILLIN
     Indication: Product used for unknown indication
  8. AMOXICILLIN [Concomitant]
     Active Substance: AMOXICILLIN
  9. AMOXICILLIN [Concomitant]
     Active Substance: AMOXICILLIN
  10. RBC [FERRIC HYDROXIDE POLYMALTOSE COMPLEX] [Concomitant]
     Indication: Product used for unknown indication

REACTIONS (4)
  - Breakthrough haemolysis [Recovered/Resolved]
  - COVID-19 [Not Recovered/Not Resolved]
  - Haemolysis [Unknown]
  - Anaemia [Unknown]

NARRATIVE: CASE EVENT DATE: 20220905
